FAERS Safety Report 8767419 (Version 2)
Quarter: 2012Q4

REPORT INFORMATION
  Report Type: 
  Country: US (occurrence: US)
  Receive Date: 20120904
  Receipt Date: 20121011
  Transmission Date: 20130627
  Serious: Yes (Hospitalization, Other)
  Sender: FDA-Public Use
  Company Number: US-SANOFI-AVENTIS-2012SA060432

PATIENT
  Age: 67 Year
  Sex: Female
  Weight: 94.34 kg

DRUGS (9)
  1. LANTUS SOLOSTAR [Suspect]
     Indication: TYPE II DIABETES MELLITUS
     Dosage: Dose:50 unit(s)
     Route: 058
     Dates: start: 2012
  2. LANTUS SOLOSTAR [Suspect]
     Indication: BLOOD GLUCOSE INCREASED
     Dosage: Dose:50 unit(s)
     Route: 058
     Dates: start: 2012
  3. SOLOSTAR [Suspect]
     Indication: TYPE II DIABETES MELLITUS
     Dates: start: 2012
  4. SOLOSTAR [Suspect]
     Indication: BLOOD GLUCOSE INCREASED
     Dates: start: 2012
  5. CALCIUM [Concomitant]
     Indication: PROPHYLAXIS
     Route: 065
     Dates: start: 2012
  6. LEVOTHYROXINE [Concomitant]
     Indication: HYPOTHYROIDISM
     Route: 065
  7. GABAPENTIN [Concomitant]
     Indication: LEG PAIN
     Route: 065
  8. SIMVASTATIN [Concomitant]
     Indication: CHOLESTEROL
     Route: 065
  9. ASPIRIN [Concomitant]
     Indication: THROMBOSIS PROPHYLAXIS
     Route: 065

REACTIONS (3)
  - Lower limb fracture [Unknown]
  - Retinal haemorrhage [Unknown]
  - Visual acuity reduced [Unknown]
